FAERS Safety Report 20847951 (Version 1)
Quarter: 2022Q2

REPORT INFORMATION
  Report Type: Report from Study
  Country: US (occurrence: US)
  Receive Date: 20220519
  Receipt Date: 20220519
  Transmission Date: 20220721
  Serious: No
  Sender: FDA-Public Use
  Company Number: US-VANDA PHARMACEUTICALS, INC-2021ILOUS001858

PATIENT
  Sex: Female

DRUGS (1)
  1. FANAPT [Suspect]
     Active Substance: ILOPERIDONE
     Indication: Schizophrenia
     Dosage: UNK
     Dates: start: 202103

REACTIONS (7)
  - Oedema peripheral [Unknown]
  - Blood cholesterol decreased [Unknown]
  - Menstrual disorder [Unknown]
  - Dysmenorrhoea [Unknown]
  - Bone loss [Unknown]
  - Bone pain [Unknown]
  - Blood glucose increased [Unknown]
